FAERS Safety Report 17830429 (Version 1)
Quarter: 2020Q2

REPORT INFORMATION
  Report Type: Report from Study
  Country: IL (occurrence: IL)
  Receive Date: 20200527
  Receipt Date: 20200527
  Transmission Date: 20200714
  Serious: Yes (Other)
  Sender: FDA-Public Use
  Company Number: IL-SEATTLE GENETICS-2020SGN02317

PATIENT
  Age: 32 Year
  Sex: Male

DRUGS (1)
  1. BRENTUXIMAB VEDOTIN-MPI [Suspect]
     Active Substance: BRENTUXIMAB VEDOTIN
     Indication: HODGKIN^S DISEASE
     Dosage: UNK
     Route: 042
     Dates: start: 201811, end: 201905

REACTIONS (10)
  - Fatigue [Recovering/Resolving]
  - Nausea [Recovering/Resolving]
  - Memory impairment [Recovering/Resolving]
  - Disturbance in attention [Recovering/Resolving]
  - Neuropathy peripheral [Recovering/Resolving]
  - Spinal pain [Recovering/Resolving]
  - Cognitive disorder [Recovering/Resolving]
  - Cardiopulmonary failure [Recovering/Resolving]
  - Finger deformity [Recovering/Resolving]
  - Tremor [Recovering/Resolving]

NARRATIVE: CASE EVENT DATE: 201811
